FAERS Safety Report 15975293 (Version 2)
Quarter: 2019Q1

REPORT INFORMATION
  Report Type: Report from Study
  Country: US (occurrence: US)
  Receive Date: 20190218
  Receipt Date: 20190225
  Transmission Date: 20190418
  Serious: Yes (Other)
  Sender: FDA-Public Use
  Company Number: US-ROCHE-2263310

PATIENT
  Age: 34 Year
  Sex: Female
  Weight: 58.11 kg

DRUGS (2)
  1. OCREVUS [Suspect]
     Active Substance: OCRELIZUMAB
     Indication: RELAPSING MULTIPLE SCLEROSIS
     Dosage: FULL DOSE: /AUG/2018
     Route: 065
     Dates: start: 201802, end: 201811
  2. AUBAGIO [Concomitant]
     Active Substance: TERIFLUNOMIDE

REACTIONS (5)
  - Sensory disturbance [Unknown]
  - Dysphagia [Unknown]
  - Herpes zoster [Recovered/Resolved]
  - Dyspnoea [Unknown]
  - Drug intolerance [Unknown]

NARRATIVE: CASE EVENT DATE: 201808
